FAERS Safety Report 8343704 (Version 6)
Quarter: 2013Q1

REPORT INFORMATION
  Report Type: Report from Study
  Country: JP (occurrence: JP)
  Receive Date: 20120119
  Receipt Date: 20130102
  Transmission Date: 20140127
  Serious: Yes (Hospitalization)
  Sender: FDA-Public Use
  Company Number: JP-EISAI INC-E2020-10214-CLI-JP

PATIENT
  Age: 60 Year
  Sex: Female
  Weight: 68 kg

DRUGS (14)
  1. DONEPEZIL [Suspect]
     Indication: PARKINSON^S DISEASE
     Dosage: DOUBLE BLIND
     Route: 048
     Dates: start: 20111101, end: 20111114
  2. DONEPEZIL [Suspect]
     Dosage: DOUBLE BLIND
     Route: 048
     Dates: start: 20111115, end: 20120517
  3. DONEPEZIL [Suspect]
     Dosage: DOUBLE BLIND
     Route: 048
     Dates: start: 20120524, end: 20121211
  4. PERMAX [Suspect]
     Indication: PARKINSON^S DISEASE
     Dosage: 375 UG
     Route: 048
  5. PERMAX [Suspect]
     Dosage: 1500 UG
     Route: 048
     Dates: end: 20121120
  6. PERMAX [Suspect]
     Route: 048
     Dates: start: 20121124, end: 20121125
  7. MAGMITT [Concomitant]
     Indication: CONSTIPATION
     Route: 048
  8. MADOPAR [Concomitant]
     Indication: PARKINSON^S DISEASE
     Route: 048
     Dates: end: 20120524
  9. MADOPAR [Concomitant]
     Route: 048
     Dates: start: 20120525
  10. GASMOTIN [Concomitant]
     Indication: CONSTIPATION
     Route: 048
  11. VESICARE OD [Concomitant]
     Indication: HYPERTONIC BLADDER
     Route: 048
     Dates: start: 20111101
  12. THYRADIN S [Concomitant]
     Indication: HYPOTHYROIDISM
     Route: 048
     Dates: start: 20120119
  13. SENNOSIDE [Concomitant]
     Indication: CONSTIPATION
     Route: 048
  14. GLACTIV [Concomitant]
     Indication: HYPERGLYCAEMIA
     Route: 048
     Dates: start: 20120117

REACTIONS (3)
  - Dystonia [Recovered/Resolved]
  - Dystonia [Recovering/Resolving]
  - Parkinson^s disease [Not Recovered/Not Resolved]
